FAERS Safety Report 7409967-0 (Version None)
Quarter: 2011Q2

REPORT INFORMATION
  Report Type: 
  Country: None (occurrence: None)
  Receive Date: 20110412
  Receipt Date: 20110328
  Transmission Date: 20111010
  Serious: Yes (Other)
  Sender: FDA-Public Use
  Company Number: US-SHIRE-ALL1-2011-00648

PATIENT
  Age: 50 Year
  Sex: Female
  Weight: 46.712 kg

DRUGS (4)
  1. AMBIEN CR [Concomitant]
     Indication: INSOMNIA
     Dosage: 12.5 MG, 1X/DAY:QD AT HS (HOURS OF SLEEP)
     Route: 048
     Dates: start: 20080101
  2. IBUPROFEN [Suspect]
     Indication: UPPER LIMB FRACTURE
     Dosage: 400 - 600 MG TID
     Route: 048
     Dates: start: 20020101, end: 20110309
  3. PROZAC [Concomitant]
     Indication: DEPRESSION
     Dosage: 40 MG, 1X/DAY:QD AT HS (HOURS OF SLEEP)
     Route: 048
     Dates: start: 20080101
  4. ADDERALL XR 10 [Suspect]
     Indication: PRODUCT USED FOR UNKNOWN INDICATION
     Dosage: 30 MG, 1X/DAY:QD
     Route: 048
     Dates: start: 20100301

REACTIONS (3)
  - EPISTAXIS [None]
  - RECTAL HAEMORRHAGE [None]
  - TRAUMATIC BRAIN INJURY [None]
